FAERS Safety Report 4350186-2 (Version None)
Quarter: 2004Q2

REPORT INFORMATION
  Report Type: 
  Country: None (occurrence: None)
  Receive Date: 20040426
  Receipt Date: 20040419
  Transmission Date: 20050107
  Serious: Yes (Death, Hospitalization)
  Sender: FDA-Public Use
  Company Number: 2004-03-1746

PATIENT
  Age: 49 Year
  Sex: Male
  Weight: 69 kg

DRUGS (5)
  1. VIRAFERONPEG [Suspect]
     Indication: HEPATITIS C
     Dosage: 1.5 MCG/KG QW SUBCUTANEO
     Route: 058
     Dates: start: 20031103
  2. REBETOL [Suspect]
     Indication: HEPATITIS C
     Dosage: 600 MG QD ORAL
     Route: 048
     Dates: start: 20031103
  3. INVIRASE [Suspect]
     Indication: HIV INFECTION
     Dosage: 600 MG ORAL
     Route: 048
     Dates: start: 20020203
  4. KALETRA [Suspect]
     Indication: HIV INFECTION
     Dosage: 4 QD ORAL
     Route: 048
     Dates: start: 20020203
  5. DEROXAT [Concomitant]

REACTIONS (2)
  - CEREBROVASCULAR ACCIDENT [None]
  - THROMBOCYTOPENIA [None]
